FAERS Safety Report 24409875 (Version 2)
Quarter: 2024Q4

REPORT INFORMATION
  Report Type: Spontaneous
  Country: HU (occurrence: HU)
  Receive Date: 20241008
  Receipt Date: 20241021
  Transmission Date: 20250115
  Serious: Yes (Other)
  Sender: UCB
  Company Number: HU-UCBSA-2024050840

PATIENT
  Age: 38 Year
  Sex: Female

DRUGS (2)
  1. CIMZIA [Suspect]
     Active Substance: CERTOLIZUMAB PEGOL
     Indication: Rheumatoid arthritis
     Dosage: UNK
     Route: 058
     Dates: start: 20220520
  2. CHLOROQUINE [Concomitant]
     Active Substance: CHLOROQUINE
     Indication: Product used for unknown indication
     Dosage: UNK, SUSPENSION

REACTIONS (2)
  - Macular oedema [Unknown]
  - Central serous chorioretinopathy [Unknown]

NARRATIVE: CASE EVENT DATE: 20240907
